FAERS Safety Report 16239354 (Version 1)
Quarter: 2019Q2

REPORT INFORMATION
  Report Type: Spontaneous
  Country: CA (occurrence: CA)
  Receive Date: 20190425
  Receipt Date: 20190425
  Transmission Date: 20190711
  Serious: Yes (Other)
  Sender: FDA-Public Use
  Company Number: CA-PFIZER INC-2019166912

PATIENT
  Age: 74 Year
  Sex: Female

DRUGS (4)
  1. MSM [Concomitant]
     Active Substance: DIMETHYL SULFONE
     Dosage: UNK
  2. ATIVAN [Suspect]
     Active Substance: LORAZEPAM
     Dosage: UNK
  3. INDOMETHACIN [INDOMETACIN] [Concomitant]
     Active Substance: INDOMETHACIN
     Dosage: UNK
  4. NITRO-SPRAY [Concomitant]
     Active Substance: ISOSORBIDE DINITRATE
     Dosage: UNK

REACTIONS (4)
  - Malaise [Unknown]
  - Infection [Unknown]
  - Mastitis [Unknown]
  - Fatigue [Not Recovered/Not Resolved]
